FAERS Safety Report 14406137 (Version 1)
Quarter: 2018Q1

REPORT INFORMATION
  Report Type: Spontaneous
  Country: US (occurrence: US)
  Receive Date: 20180116
  Receipt Date: 20180116
  Transmission Date: 20180509
  Serious: Yes (Hospitalization)
  Sender: FDA-Public Use
  Company Number: None

PATIENT
  Sex: Female
  Weight: 35.7 kg

DRUGS (4)
  1. METHOTREXATE. [Suspect]
     Active Substance: METHOTREXATE
     Dates: end: 20180103
  2. CYCLOPHOSPHAMIDE. [Suspect]
     Active Substance: CYCLOPHOSPHAMIDE
     Dates: end: 20171226
  3. THIOGUANINE (6-TG) [Suspect]
     Active Substance: THIOGUANINE ANHYDROUS
     Dates: end: 20180109
  4. CYTARABINE. [Suspect]
     Active Substance: CYTARABINE
     Dates: end: 20180106

REACTIONS (11)
  - Dysarthria [None]
  - Cerebral artery stenosis [None]
  - Cerebrovascular accident [None]
  - Anaemia [None]
  - Lacunar infarction [None]
  - Headache [None]
  - Neurotoxicity [None]
  - Hemiplegia [None]
  - Muscular weakness [None]
  - Facial paralysis [None]
  - Haemorrhage intracranial [None]

NARRATIVE: CASE EVENT DATE: 20180108
